FAERS Safety Report 7579959-X (Version None)
Quarter: 2011Q2

REPORT INFORMATION
  Report Type: 
  Country: None (occurrence: None)
  Receive Date: 20110527
  Receipt Date: 20101008
  Transmission Date: 20111010
  Serious: Yes (Hospitalization)
  Sender: FDA-Public Use
  Company Number: US200905004476

PATIENT
  Age: 35 Year
  Sex: Male

DRUGS (16)
  1. LEVAQUIN [Concomitant]
  2. ACTOS [Concomitant]
  3. CHANTIX /05703001/ (VARENICLINE) [Concomitant]
  4. PRILOSEC [Concomitant]
  5. GLYBURIDE [Concomitant]
  6. CELEBREX [Concomitant]
  7. HYOSCYAMINE (HYOSCYAMINE) [Concomitant]
  8. STARLIX [Concomitant]
  9. DIAZEPAM [Concomitant]
  10. EXENATIDE 5MCG PEN, DISPOSABLE DEVICE (EXENATIDE PEN (5MCG)) [Concomitant]
  11. METOCLOPRAMIDE [Concomitant]
  12. VICODIN [Concomitant]
  13. CREON [Concomitant]
  14. LIDODERM [Concomitant]
  15. BYETTA [Suspect]
     Dosage: 5 UG
     Dates: start: 20050601, end: 20071201
  16. PREVACID [Concomitant]

REACTIONS (3)
  - PANCREATITIS ACUTE [None]
  - OFF LABEL USE [None]
  - CHOLELITHIASIS [None]
